FAERS Safety Report 12388588 (Version 1)
Quarter: 2016Q2

REPORT INFORMATION
  Report Type: Spontaneous
  Country: US (occurrence: US)
  Receive Date: 20160520
  Receipt Date: 20160520
  Transmission Date: 20160815
  Serious: No
  Sender: FDA-Public Use
  Company Number: US-PFIZER INC-2016236572

PATIENT
  Sex: Female
  Weight: 90 kg

DRUGS (2)
  1. DIFLUCAN [Suspect]
     Active Substance: FLUCONAZOLE
     Dosage: UNK
  2. FLUCONAZOLE. [Suspect]
     Active Substance: FLUCONAZOLE
     Indication: FUNGAL INFECTION
     Dosage: 200 MG, UNK
     Route: 048

REACTIONS (4)
  - Rash pruritic [Unknown]
  - Pruritus generalised [Unknown]
  - Scratch [Unknown]
  - Rash [Unknown]
